FAERS Safety Report 4372347-9 (Version None)
Quarter: 2004Q2

REPORT INFORMATION
  Report Type: 
  Country: None (occurrence: None)
  Receive Date: 20040602
  Receipt Date: 20040524
  Transmission Date: 20050107
  Serious: Yes (Hospitalization)
  Sender: FDA-Public Use
  Company Number: 2004IC000139

PATIENT
  Age: 72 Year
  Sex: Male
  Weight: 77.6 kg

DRUGS (5)
  1. FLUOROURACIL [Suspect]
     Indication: COLORECTAL CANCER METASTATIC
  2. PTK787/ZK 222584 VS PLACEBO [Suspect]
     Indication: COLORECTAL CANCER METASTATIC
  3. OXALIPLATIN [Concomitant]
  4. LEUCOVORIN [Concomitant]
  5. ASPIRIN CARDIO [Concomitant]

REACTIONS (3)
  - ELECTROCARDIOGRAM ST SEGMENT DEPRESSION [None]
  - ELECTROCARDIOGRAM ST SEGMENT ELEVATION [None]
  - ELECTROCARDIOGRAM T WAVE INVERSION [None]
